FAERS Safety Report 9133962 (Version 3)
Quarter: 2013Q1

REPORT INFORMATION
  Report Type: Spontaneous
  Country: US (occurrence: US)
  Receive Date: 20130304
  Receipt Date: 20130322
  Transmission Date: 20140127
  Serious: Yes (Death)
  Sender: FDA-Public Use
  Company Number: US-AMGEN-USASP2013014464

PATIENT
  Age: 88 Year
  Sex: Male

DRUGS (1)
  1. PROCRIT [Suspect]
     Indication: PRODUCT USED FOR UNKNOWN INDICATION
     Dosage: 30000 ML, UNK

REACTIONS (5)
  - Cardiovascular disorder [Fatal]
  - Cardiomyopathy [Fatal]
  - Coronary artery disease [Fatal]
  - Coronary artery bypass [Fatal]
  - Implantable defibrillator insertion [Fatal]
